FAERS Safety Report 22051536 (Version 2)
Quarter: 2023Q1

REPORT INFORMATION
  Report Type: Spontaneous
  Country: US (occurrence: US)
  Receive Date: 20230301
  Receipt Date: 20230310
  Transmission Date: 20230417
  Serious: No
  Sender: FDA-Public Use
  Company Number: US-ALKERMES INC.-ALK-2023-000846

PATIENT
  Age: 38 Year
  Sex: Male
  Weight: 86.168 kg

DRUGS (2)
  1. VIVITROL [Suspect]
     Active Substance: NALTREXONE
     Indication: Alcoholism
     Dosage: 380 MILLIGRAM, QMO
     Route: 030
     Dates: start: 20221206, end: 20230131
  2. VIVITROL [Suspect]
     Active Substance: NALTREXONE
     Indication: Alcohol use disorder
     Dosage: 380 MILLIGRAM, QMO
     Route: 030
     Dates: start: 202209

REACTIONS (8)
  - Sciatica [Not Recovered/Not Resolved]
  - Intervertebral disc protrusion [Unknown]
  - Lack of administration site rotation [Recovered/Resolved]
  - Injection site reaction [Recovering/Resolving]
  - Injection site pain [Recovering/Resolving]
  - Injection site induration [Recovering/Resolving]
  - Injection site mass [Recovering/Resolving]
  - Drug screen false positive [Recovering/Resolving]

NARRATIVE: CASE EVENT DATE: 20220901
